FAERS Safety Report 16900763 (Version 1)
Quarter: 2019Q4

REPORT INFORMATION
  Report Type: Spontaneous
  Country: US (occurrence: US)
  Receive Date: 20191009
  Receipt Date: 20191009
  Transmission Date: 20200122
  Serious: No
  Sender: FDA-Public Use
  Company Number: US-SA-2019SA272341

PATIENT
  Age: 65 Year
  Sex: Female

DRUGS (5)
  1. FLAXSEED [Concomitant]
     Active Substance: FLAX SEED
  2. AUBAGIO [Suspect]
     Active Substance: TERIFLUNOMIDE
     Indication: MULTIPLE SCLEROSIS
     Dosage: 14 MG, QD
     Route: 048
     Dates: start: 20190831
  3. BACLOFEN. [Concomitant]
     Active Substance: BACLOFEN
  4. CALCIUM [Concomitant]
     Active Substance: CALCIUM
  5. AMITRIPTYLINE [Concomitant]
     Active Substance: AMITRIPTYLINE

REACTIONS (2)
  - Mobility decreased [Unknown]
  - Feeling abnormal [Unknown]

NARRATIVE: CASE EVENT DATE: 2019
